FAERS Safety Report 8381189-9 (Version None)
Quarter: 2012Q2

REPORT INFORMATION
  Report Type: 
  Country: None (occurrence: None)
  Receive Date: 20120522
  Receipt Date: 20120510
  Transmission Date: 20120825
  Serious: Yes (Hospitalization, Other)
  Sender: FDA-Public Use
  Company Number: AVE_02184_2012

PATIENT
  Age: 71 Year
  Sex: Male

DRUGS (1)
  1. CLONIDINE [Suspect]
     Indication: BACK PAIN
     Dosage: (275 UG QD INTRATHECAL)
     Route: 037

REACTIONS (5)
  - ALTERED STATE OF CONSCIOUSNESS [None]
  - HYPERTENSION [None]
  - INCORRECT DOSE ADMINISTERED BY DEVICE [None]
  - SPEECH DISORDER [None]
  - DEVICE LEAKAGE [None]
